FAERS Safety Report 16631059 (Version 2)
Quarter: 2019Q3

REPORT INFORMATION
  Report Type: Spontaneous
  Country: NL (occurrence: NL)
  Receive Date: 20190725
  Receipt Date: 20190807
  Transmission Date: 20191004
  Serious: Yes (Other)
  Sender: FDA-Public Use
  Company Number: NL-AUROBINDO-AUR-APL-2019-042936

PATIENT

DRUGS (1)
  1. SPIRONOLACTON 25 MG TABLET [Suspect]
     Active Substance: SPIRONOLACTONE
     Indication: OEDEMA
     Dosage: 25 MILLIGRAM, ONCE A DAY
     Route: 048
     Dates: start: 201504

REACTIONS (3)
  - Spermatogenesis abnormal [Recovered/Resolved]
  - Asthenospermia [Recovered/Resolved]
  - Oligospermia [Recovered/Resolved]
